FAERS Safety Report 17472126 (Version 2)
Quarter: 2020Q2

REPORT INFORMATION
  Report Type: Spontaneous
  Country: US (occurrence: US)
  Receive Date: 20200228
  Receipt Date: 20200428
  Transmission Date: 20200713
  Serious: Yes (Other)
  Sender: FDA-Public Use
  Company Number: US-009507513-2002USA008643

PATIENT
  Age: 34 Year
  Sex: Female
  Weight: 110.66 kg

DRUGS (1)
  1. NEXPLANON [Suspect]
     Active Substance: ETONOGESTREL
     Indication: CONTRACEPTION
     Dosage: 1 IMPLANT
     Route: 059
     Dates: start: 20200108

REACTIONS (8)
  - Nerve compression [Unknown]
  - Discomfort [Unknown]
  - Device dislocation [Not Recovered/Not Resolved]
  - Neuralgia [Unknown]
  - Radiculopathy [Not Recovered/Not Resolved]
  - Implant site hyperaesthesia [Not Recovered/Not Resolved]
  - Implant site bruising [Not Recovered/Not Resolved]
  - Implant site pain [Not Recovered/Not Resolved]

NARRATIVE: CASE EVENT DATE: 2020
